FAERS Safety Report 9428260 (Version 1)
Quarter: 2013Q3

REPORT INFORMATION
  Report Type: Spontaneous
  Country: US (occurrence: US)
  Receive Date: 20130730
  Receipt Date: 20130730
  Transmission Date: 20140515
  Serious: No
  Sender: FDA-Public Use
  Company Number: US-GLAXOSMITHKLINE-A1017297A

PATIENT
  Age: 59 Day
  Sex: Female

DRUGS (2)
  1. ZANTAC [Suspect]
     Indication: GASTROOESOPHAGEAL REFLUX DISEASE
     Dosage: 1ML TWICE PER DAY
     Route: 048
     Dates: start: 201208
  2. PREVACID [Concomitant]

REACTIONS (3)
  - Vomiting [Not Recovered/Not Resolved]
  - Retching [Unknown]
  - Dysgeusia [Unknown]
